FAERS Safety Report 15641692 (Version 1)
Quarter: 2018Q4

REPORT INFORMATION
  Report Type: Spontaneous
  Country: US (occurrence: US)
  Receive Date: 20181121
  Receipt Date: 20181121
  Transmission Date: 20190205
  Serious: No
  Sender: FDA-Public Use
  Company Number: US-ACCORD-072890

PATIENT
  Age: 70 Year
  Sex: Female

DRUGS (1)
  1. HYDROCHLOROTHIAZIDE. [Suspect]
     Active Substance: HYDROCHLOROTHIAZIDE
     Indication: HYPERTENSION
     Dosage: DOSE: 12.5 MG THREE TIMES A WEEK
     Route: 048

REACTIONS (2)
  - Arthralgia [Recovered/Resolved]
  - Recalled product administered [Unknown]
